FAERS Safety Report 4304684-8 (Version None)
Quarter: 2004Q1

REPORT INFORMATION
  Report Type: 
  Country: None (occurrence: None)
  Receive Date: 20040225
  Receipt Date: 20040225
  Transmission Date: 20041129
  Serious: Yes (Life-Threatening, Hospitalization, Disabling)
  Sender: FDA-Public Use
  Company Number: None

PATIENT
  Age: 6 Year
  Sex: Male
  Weight: 12.9 kg

DRUGS (6)
  1. CYCLOSPORINE [Suspect]
     Dosage: IV
     Route: 042
     Dates: start: 20020112, end: 20031106
  2. CARBAMAZEPINE [Concomitant]
  3. PREDNISONE [Concomitant]
  4. MAGNESIUM OXIDE [Concomitant]
  5. NEUPOGEN [Concomitant]
  6. BACTRIM [Concomitant]

REACTIONS (3)
  - CONVULSION [None]
  - ENCEPHALOPATHY [None]
  - NERVOUS SYSTEM DISORDER [None]
